FAERS Safety Report 10228071 (Version 1)
Quarter: 2014Q2

REPORT INFORMATION
  Report Type: Spontaneous
  Country: GB (occurrence: GB)
  Receive Date: 20140610
  Receipt Date: 20140610
  Transmission Date: 20141212
  Serious: Yes (Other)
  Sender: FDA-Public Use
  Company Number: GB-TEVA-486794ISR

PATIENT
  Age: 25 Year
  Sex: Male
  Weight: 59.2 kg

DRUGS (1)
  1. OLANZAPINE [Suspect]
     Indication: MENTAL DISORDER
     Dosage: 10 MILLIGRAM DAILY;
     Dates: start: 20140526

REACTIONS (7)
  - Dyspnoea [Unknown]
  - Mouth swelling [Unknown]
  - Pharyngeal oedema [Unknown]
  - Musculoskeletal stiffness [Unknown]
  - Painful erection [Unknown]
  - Somnolence [Unknown]
  - Somnolence [Unknown]
